FAERS Safety Report 11384645 (Version 1)
Quarter: 2015Q3

REPORT INFORMATION
  Report Type: Spontaneous
  Country: US (occurrence: US)
  Receive Date: 20150811
  Receipt Date: 20150811
  Transmission Date: 20151125
  Serious: No
  Sender: FDA-Public Use
  Company Number: US-ELI_LILLY_AND_COMPANY-US201106004760

PATIENT
  Age: 45 Year
  Sex: Female

DRUGS (3)
  1. AMBRISENTAN [Concomitant]
     Active Substance: AMBRISENTAN
  2. ADCIRCA [Suspect]
     Active Substance: TADALAFIL
  3. REMODULIN [Concomitant]
     Active Substance: TREPROSTINIL
     Dosage: 2.5 DF, UNK
     Route: 042
     Dates: start: 20100303

REACTIONS (5)
  - Nasal congestion [Unknown]
  - Weight decreased [Unknown]
  - Headache [Not Recovered/Not Resolved]
  - Chest pain [Unknown]
  - Nausea [Recovered/Resolved]

NARRATIVE: CASE EVENT DATE: 20110609
